FAERS Safety Report 15985100 (Version 5)
Quarter: 2020Q1

REPORT INFORMATION
  Report Type: Report from Study
  Country: US (occurrence: US)
  Receive Date: 20190220
  Receipt Date: 20200205
  Transmission Date: 20200409
  Serious: Yes (Other)
  Sender: FDA-Public Use
  Company Number: US-PURDUE-USA-2019-0146031

PATIENT
  Age: 62 Year
  Sex: Male

DRUGS (5)
  1. HYDROCODONE BITARTRATE AND ACETAMINOPHEN [Suspect]
     Active Substance: ACETAMINOPHEN\HYDROCODONE BITARTRATE
     Dosage: 10/325 MG, TID
     Route: 048
  2. MORPHINE [Suspect]
     Active Substance: MORPHINE
     Indication: PAIN
     Dosage: UNK, SINGLE
     Route: 042
     Dates: start: 202001, end: 202001
  3. HYDROCODONE BITARTRATE. [Suspect]
     Active Substance: HYDROCODONE BITARTRATE
     Dosage: 30 MG, BID
     Route: 048
     Dates: start: 201902
  4. HYDROCODONE BITARTRATE AND ACETAMINOPHEN [Suspect]
     Active Substance: ACETAMINOPHEN\HYDROCODONE BITARTRATE
     Indication: PAIN
     Dosage: 1 TABLET, Q6H
     Route: 048
     Dates: start: 201902
  5. HYDROCODONE BITARTRATE. [Suspect]
     Active Substance: HYDROCODONE BITARTRATE
     Indication: PAIN
     Dosage: 60 MG, BID
     Route: 048
     Dates: start: 201808

REACTIONS (10)
  - Abnormal behaviour [Unknown]
  - Therapeutic product effect incomplete [Not Recovered/Not Resolved]
  - Nausea [Unknown]
  - Dysarthria [Unknown]
  - Vomiting [Unknown]
  - Off label use [Not Recovered/Not Resolved]
  - Epidural injection [Unknown]
  - Ill-defined disorder [Unknown]
  - Drug withdrawal syndrome [Unknown]
  - Vertigo [Unknown]

NARRATIVE: CASE EVENT DATE: 20190214
